FAERS Safety Report 12924190 (Version 1)
Quarter: 2016Q4

REPORT INFORMATION
  Report Type: Spontaneous
  Country: RU (occurrence: RU)
  Receive Date: 20161109
  Receipt Date: 20161109
  Transmission Date: 20170207
  Serious: Yes (Hospitalization, Other)
  Sender: FDA-Public Use
  Company Number: RU-ABBVIE-16K-251-1769519-00

PATIENT
  Age: 71 Year
  Sex: Male
  Weight: 90 kg

DRUGS (16)
  1. PULMICORT TURBUHALER [Concomitant]
     Active Substance: BUDESONIDE
     Indication: CHRONIC OBSTRUCTIVE PULMONARY DISEASE
  2. AMLODIPINE [Concomitant]
     Active Substance: AMLODIPINE BESYLATE
     Indication: CORONARY ARTERY DISEASE
  3. AMLODIPINE [Concomitant]
     Active Substance: AMLODIPINE BESYLATE
     Indication: ANGINA PECTORIS
  4. SERETIDE [Concomitant]
     Active Substance: FLUTICASONE PROPIONATE\SALMETEROL XINAFOATE
     Indication: EMPHYSEMA
  5. HUMIRA [Suspect]
     Active Substance: ADALIMUMAB
     Indication: ANKYLOSING SPONDYLITIS
     Route: 058
     Dates: start: 20150406, end: 20161028
  6. PULMICORT TURBUHALER [Concomitant]
     Active Substance: BUDESONIDE
     Indication: EMPHYSEMA
  7. FLAMAX [Concomitant]
     Indication: GASTRODUODENITIS
  8. TRAMAL [Concomitant]
     Active Substance: TRAMADOL
     Indication: CANCER PAIN
  9. FLAMAX [Concomitant]
     Indication: DIVERTICULITIS
  10. PEKTROL [Concomitant]
     Active Substance: ISOSORBIDE MONONITRATE
     Indication: CORONARY ARTERY DISEASE
  11. PEKTROL [Concomitant]
     Active Substance: ISOSORBIDE MONONITRATE
     Indication: ANGINA PECTORIS
  12. SPIRIVA [Concomitant]
     Active Substance: TIOTROPIUM BROMIDE MONOHYDRATE
     Indication: CHRONIC OBSTRUCTIVE PULMONARY DISEASE
  13. SERETIDE [Concomitant]
     Active Substance: FLUTICASONE PROPIONATE\SALMETEROL XINAFOATE
     Indication: CHRONIC OBSTRUCTIVE PULMONARY DISEASE
  14. SPIRIVA [Concomitant]
     Active Substance: TIOTROPIUM BROMIDE MONOHYDRATE
     Indication: EMPHYSEMA
  15. OMEZ [Concomitant]
     Active Substance: OMEPRAZOLE
     Indication: GASTRODUODENITIS
  16. OMEZ [Concomitant]
     Active Substance: OMEPRAZOLE
     Indication: DIVERTICULITIS

REACTIONS (8)
  - Lymphadenopathy mediastinal [Unknown]
  - Oesophageal fistula [Recovered/Resolved]
  - Ultrasound thyroid abnormal [Unknown]
  - Hepatomegaly [Unknown]
  - Gastrointestinal anastomotic leak [Recovered/Resolved]
  - Oesophageal cancer metastatic [Recovering/Resolving]
  - Cholelithiasis [Unknown]
  - Oesophageal stenosis [Recovered/Resolved]

NARRATIVE: CASE EVENT DATE: 2016
